FAERS Safety Report 9177943 (Version 4)
Quarter: 2013Q4

REPORT INFORMATION
  Report Type: Spontaneous
  Country: US (occurrence: US)
  Receive Date: 20130321
  Receipt Date: 20131205
  Transmission Date: 20140711
  Serious: Yes (Hospitalization, Other)
  Sender: FDA-Public Use
  Company Number: US-009507513-1303USA009178

PATIENT
  Sex: Male

DRUGS (5)
  1. FOSAMAX [Suspect]
     Indication: ANKYLOSING SPONDYLITIS
     Dosage: 10 MG, QD
     Route: 048
     Dates: end: 200110
  2. FOSAMAX [Suspect]
     Indication: BONE DENSITY DECREASED
     Dosage: 70 MG, QW
     Route: 048
     Dates: start: 200111, end: 200802
  3. ALENDRONATE SODIUM [Suspect]
     Indication: ANKYLOSING SPONDYLITIS
     Dosage: 70 MG, QW
     Route: 048
     Dates: start: 200803, end: 201101
  4. ALENDRONATE SODIUM [Suspect]
     Indication: BONE DENSITY DECREASED
  5. OMEPRAZOLE [Concomitant]
     Dosage: UNK
     Dates: start: 1990, end: 2000

REACTIONS (24)
  - Femur fracture [Unknown]
  - Intramedullary rod insertion [Unknown]
  - Fracture nonunion [Unknown]
  - Surgery [Unknown]
  - Intramedullary rod insertion [Unknown]
  - Pancreatitis [Unknown]
  - Splenectomy [Unknown]
  - Humerus fracture [Unknown]
  - Knee arthroplasty [Unknown]
  - Femur fracture [Unknown]
  - Hypertension [Unknown]
  - Adverse event [Unknown]
  - Benign prostatic hyperplasia [Unknown]
  - Diabetes mellitus [Unknown]
  - Osteoarthritis [Unknown]
  - Arthroscopy [Unknown]
  - Adverse drug reaction [Unknown]
  - Osteoporosis [Unknown]
  - Osteopenia [Unknown]
  - Spinal disorder [Unknown]
  - Back pain [Not Recovered/Not Resolved]
  - Arthralgia [Not Recovered/Not Resolved]
  - Arthralgia [Unknown]
  - Off label use [Unknown]
